FAERS Safety Report 18934845 (Version 2)
Quarter: 2021Q1

REPORT INFORMATION
  Report Type: Report from Study
  Country: US (occurrence: US)
  Receive Date: 20210224
  Receipt Date: 20210325
  Transmission Date: 20210420
  Serious: Yes (Death, Other)
  Sender: FDA-Public Use
  Company Number: US-GLAXOSMITHKLINE-US2021AMR050990

PATIENT
  Age: 61 Year
  Sex: Male

DRUGS (1)
  1. BELANTAMAB MAFODOTIN. [Suspect]
     Active Substance: BELANTAMAB MAFODOTIN
     Indication: PRODUCT USED FOR UNKNOWN INDICATION
     Dosage: UNK
     Dates: start: 20201009, end: 20201009

REACTIONS (5)
  - Dysstasia [Unknown]
  - Speech disorder [Unknown]
  - Death [Fatal]
  - Condition aggravated [Unknown]
  - Muscular weakness [Unknown]

NARRATIVE: CASE EVENT DATE: 20201012
